FAERS Safety Report 21802953 (Version 1)
Quarter: 2022Q4

REPORT INFORMATION
  Report Type: Report from Study
  Country: US (occurrence: US)
  Receive Date: 20221231
  Receipt Date: 20221231
  Transmission Date: 20230113
  Serious: No
  Sender: FDA-Public Use
  Company Number: US-ACORDA-ACO_173862_2022

PATIENT
  Sex: Female

DRUGS (5)
  1. INBRIJA [Suspect]
     Active Substance: LEVODOPA
     Indication: Parkinson^s disease
     Dosage: 2 DOSAGE FORM (84 MG, 2 CAPSULES), PRN (NOT TO EXCEED 5 DOSES A DAY)
     Dates: start: 20220828
  2. INBRIJA [Suspect]
     Active Substance: LEVODOPA
     Indication: On and off phenomenon
     Dosage: 2 DOSAGE FORM (84 MG, 2 CAPSULES), PRN (NOT TO EXCEED 5 DOSES A DAY)
     Dates: start: 20220828
  3. INBRIJA [Suspect]
     Active Substance: LEVODOPA
     Dosage: 2 DOSAGE FORM (84 MG, 2 CAPSULES), PRN (NOT TO EXCEED 5 DOSES A DAY)
     Dates: start: 20220828
  4. RYTARY [Concomitant]
     Active Substance: CARBIDOPA\LEVODOPA
     Indication: Product used for unknown indication
     Dosage: 36.25 MG/145 MG 2 PILLS 3X A DAY, AND THEN 1 PILL AT BED TIME AND 1 PILL IN MIDDLE OF THE NIGHT
     Route: 065
  5. SERTRALINE HYDROCHLORIDE [Concomitant]
     Active Substance: SERTRALINE HYDROCHLORIDE
     Indication: Product used for unknown indication
     Dosage: 25 MILLIGRAM, QD
     Route: 065

REACTIONS (4)
  - Sensation of foreign body [Not Recovered/Not Resolved]
  - Product container issue [Unknown]
  - Cough [Not Recovered/Not Resolved]
  - Sputum discoloured [Not Recovered/Not Resolved]
